FAERS Safety Report 8376510-1 (Version None)
Quarter: 2012Q2

REPORT INFORMATION
  Report Type: 
  Country: None (occurrence: None)
  Receive Date: 20120518
  Receipt Date: 20120510
  Transmission Date: 20120825
  Serious: Yes (Death, Life-Threatening, Hospitalization, Other)
  Sender: FDA-Public Use
  Company Number: ADR-2012-00739

PATIENT
  Age: 48 Year
  Sex: Female

DRUGS (1)
  1. BACLOFEN [Suspect]
     Dosage: 280 MCG/DAY

REACTIONS (5)
  - PANCYTOPENIA [None]
  - HYPOTENSION [None]
  - ACUTE RESPIRATORY DISTRESS SYNDROME [None]
  - PNEUMONIA [None]
  - CARDIAC ARREST [None]
